FAERS Safety Report 4368799-0 (Version None)
Quarter: 2004Q2

REPORT INFORMATION
  Report Type: 
  Country: None (occurrence: None)
  Receive Date: 20040528
  Receipt Date: 20040519
  Transmission Date: 20050107
  Serious: Yes (Other)
  Sender: FDA-Public Use
  Company Number: 2004034033

PATIENT
  Age: 66 Year
  Sex: Male

DRUGS (1)
  1. VIAGRA [Suspect]
     Indication: ERECTILE DYSFUNCTION
     Dosage: ORAL
     Route: 048

REACTIONS (6)
  - CATARACT [None]
  - EYE INFECTION [None]
  - MEDICATION ERROR [None]
  - RETINAL TEAR [None]
  - STAPHYLOCOCCAL INFECTION [None]
  - VITREOUS FLOATERS [None]
